FAERS Safety Report 4770593-3 (Version None)
Quarter: 2005Q3

REPORT INFORMATION
  Report Type: 
  Country: None (occurrence: None)
  Receive Date: 20050915
  Receipt Date: 20050907
  Transmission Date: 20060218
  Serious: Yes (Death)
  Sender: FDA-Public Use
  Company Number: US-JNJFOC-20050901680

PATIENT
  Age: 30 Year
  Sex: Male

DRUGS (5)
  1. IBUPROFEN AND PSEUDOEPHEDRINE HCL [Suspect]
     Indication: SUICIDE ATTEMPT
     Route: 048
  2. IBUPROFEN AND PSEUDOEPHEDRINE HCL [Suspect]
     Indication: RESPIRATORY DISORDER
     Route: 048
  3. ACETAMINOPHEN [Suspect]
     Indication: SUICIDE ATTEMPT
     Route: 048
  4. ACETAMINOPHEN [Suspect]
     Indication: RESPIRATORY DISORDER
     Route: 048
  5. INTERFERON [Concomitant]

REACTIONS (9)
  - CEREBRAL HAEMORRHAGE [None]
  - COMPLETED SUICIDE [None]
  - DISSEMINATED INTRAVASCULAR COAGULATION [None]
  - HYPERTHERMIA [None]
  - HYPOTENSION [None]
  - LUNG INFILTRATION [None]
  - MULTIPLE SCLEROSIS [None]
  - TACHYCARDIA [None]
  - TRISMUS [None]
